FAERS Safety Report 4820635-1 (Version None)
Quarter: 2005Q4

REPORT INFORMATION
  Report Type: 
  Country: None (occurrence: None)
  Receive Date: 20051102
  Receipt Date: 20051102
  Transmission Date: 20060501
  Serious: Yes (Hospitalization)
  Sender: FDA-Public Use
  Company Number: None

PATIENT
  Age: 72 Year
  Sex: Male
  Weight: 83.2 kg

DRUGS (15)
  1. LISINOPRIL [Suspect]
     Indication: BLOOD PRESSURE
     Dosage: 30 MG QD PO
     Route: 048
     Dates: start: 20050228
  2. E.E.S. [Concomitant]
  3. GUAIFENSIN [Concomitant]
  4. OMEPRAZOLE [Concomitant]
  5. BUPROPION HCL [Concomitant]
  6. LOVASTATIN [Concomitant]
  7. DILTIAZEM [Concomitant]
  8. DOCUSATE [Concomitant]
  9. ASPIRIN [Concomitant]
  10. FOLIC ACID [Concomitant]
  11. TRAMADOL [Concomitant]
  12. FESO4 [Concomitant]
  13. DICLOFENAC [Concomitant]
  14. IPRATROPIUM BROMIDE [Concomitant]
  15. BACLOFEN [Concomitant]

REACTIONS (1)
  - RENAL FAILURE ACUTE [None]
